FAERS Safety Report 7138493-1 (Version None)
Quarter: 2010Q4

REPORT INFORMATION
  Report Type: 
  Country: None (occurrence: None)
  Receive Date: 20101206
  Receipt Date: 20101201
  Transmission Date: 20110411
  Serious: Yes (Other)
  Sender: FDA-Public Use
  Company Number: US-PFIZER INC-2010161966

PATIENT
  Sex: Male
  Weight: 75 kg

DRUGS (9)
  1. CADUET [Suspect]
     Dosage: 10/20, MG, 1X/DAY
     Route: 048
  2. PLAVIX [Suspect]
     Indication: ARTERIAL OCCLUSIVE DISEASE
     Dosage: 75 MG, 1X/DAY
     Dates: start: 20030101
  3. ACETYLSALICYLIC ACID [Concomitant]
     Indication: CARDIAC DISORDER
     Dosage: 325 MG, 1X/DAY
  4. METOPROLOL [Concomitant]
     Indication: HYPERTENSION
     Dosage: UNK MG, 2X/DAY
  5. IMDUR [Concomitant]
     Dosage: 60 MG, 1X/DAY
  6. TRICOR [Concomitant]
     Dosage: 48 MG, 1X/DAY
  7. ZETIA [Concomitant]
     Dosage: UNK
  8. RANITIDINE [Concomitant]
     Indication: GASTROOESOPHAGEAL REFLUX DISEASE
     Dosage: 150 MG, 2X/DAY
  9. CALCIUM [Concomitant]
     Dosage: 1200 MG, 1X/DAY

REACTIONS (2)
  - CORONARY ARTERIAL STENT INSERTION [None]
  - HIATUS HERNIA [None]
